FAERS Safety Report 5751284-9 (Version None)
Quarter: 2008Q2

REPORT INFORMATION
  Report Type: 
  Country: None (occurrence: None)
  Receive Date: 20080528
  Receipt Date: 20080519
  Transmission Date: 20081010
  Serious: Yes (Other)
  Sender: FDA-Public Use
  Company Number: DE-PFIZER INC-2008001992

PATIENT
  Sex: Female

DRUGS (2)
  1. DEPO-CLINOVIR [Suspect]
     Indication: CONTRACEPTION
     Dosage: FREQ:FIRST INJECTION
     Route: 030
     Dates: start: 20050301, end: 20050301
  2. DEPO-CLINOVIR [Suspect]
     Dosage: FREQ:LAST INJECTION
     Route: 030
     Dates: start: 20070201, end: 20070201

REACTIONS (1)
  - INJECTION SITE INDURATION [None]
